FAERS Safety Report 6451602-2 (Version None)
Quarter: 2009Q4

REPORT INFORMATION
  Report Type: 
  Country: None (occurrence: None)
  Receive Date: 20091123
  Receipt Date: 20091112
  Transmission Date: 20100525
  Serious: Yes (Other)
  Sender: FDA-Public Use
  Company Number: PHHY2009ZA49361

PATIENT
  Age: 48 Year
  Sex: Male

DRUGS (3)
  1. LAMPRENE [Suspect]
     Indication: LEPROSY
  2. RIFAMPICIN [Concomitant]
  3. DAPSONE [Concomitant]

REACTIONS (5)
  - DIARRHOEA [None]
  - EOSINOPHIL COUNT INCREASED [None]
  - GRANULOMATOUS LIVER DISEASE [None]
  - HAEMOLYTIC ANAEMIA [None]
  - LIVER FUNCTION TEST ABNORMAL [None]
